FAERS Safety Report 9714730 (Version 2)
Quarter: 2014Q1

REPORT INFORMATION
  Report Type: Spontaneous
  Country: US (occurrence: US)
  Receive Date: 20131126
  Receipt Date: 20140124
  Transmission Date: 20141002
  Serious: Yes (Hospitalization)
  Sender: FDA-Public Use
  Company Number: US-GILEAD-2013-0088672

PATIENT
  Sex: Male

DRUGS (3)
  1. LETAIRIS [Suspect]
     Indication: PULMONARY ARTERIAL HYPERTENSION
     Dosage: 10 UNK, QD
     Route: 048
     Dates: start: 20130510
  2. RIOCIGUAT [Concomitant]
  3. VELETRI [Concomitant]

REACTIONS (1)
  - Catheterisation cardiac [Unknown]
